FAERS Safety Report 10252579 (Version 3)
Quarter: 2014Q3

REPORT INFORMATION
  Report Type: Spontaneous
  Country: US (occurrence: None)
  Receive Date: 20140619
  Receipt Date: 20140813
  Transmission Date: 20150326
  Serious: Yes (Hospitalization)
  Sender: FDA-Public Use
  Company Number: 2014-US-007227

PATIENT
  Age: 76 Year
  Sex: Male
  Weight: 97.5 kg

DRUGS (16)
  1. PRAVACHOL (PRAVASTATIN SODIUM) [Concomitant]
  2. XALATAN [Concomitant]
     Active Substance: LATANOPROST
  3. MOBIC [Concomitant]
     Active Substance: MELOXICAM
  4. XYREM [Suspect]
     Active Substance: SODIUM OXYBATE
     Indication: CATAPLEXY
     Dosage: 2.25 G, BID, ORAL
     Route: 048
     Dates: start: 201301, end: 2003
  5. LASIX [Suspect]
     Active Substance: FUROSEMIDE
     Indication: PRODUCT USED FOR UNKNOWN INDICATION
     Dates: start: 201406, end: 201406
  6. XYREM [Suspect]
     Active Substance: SODIUM OXYBATE
     Indication: NARCOLEPSY
     Dosage: 2.25 G, BID, ORAL
     Route: 048
     Dates: start: 201301, end: 2003
  7. ALDACTONE [Concomitant]
     Active Substance: SPIRONOLACTONE
  8. RITALIN [Concomitant]
     Active Substance: METHYLPHENIDATE HYDROCHLORIDE
  9. ASPIRIN (ACETYLSALICYLIC ACID) [Concomitant]
     Active Substance: ASPIRIN
  10. LIPITOR [Suspect]
     Active Substance: ATORVASTATIN CALCIUM
     Indication: PRODUCT USED FOR UNKNOWN INDICATION
     Dates: start: 201406, end: 201406
  11. LISINOPRIL (LISINOPRIL) [Concomitant]
     Active Substance: LISINOPRIL
  12. HYDROCHLOROTHIAZIDE (HYDROCHLOROTHIAZIDE) [Concomitant]
     Active Substance: HYDROCHLOROTHIAZIDE
  13. COREG [Suspect]
     Active Substance: CARVEDILOL
     Indication: PRODUCT USED FOR UNKNOWN INDICATION
     Dates: start: 201406, end: 201406
  14. WELLBUTRIN [Concomitant]
     Active Substance: BUPROPION HYDROCHLORIDE
  15. METFORMIN HCL (METFORMIN HYDROCHLORIDE) [Concomitant]
  16. FLOMAX [Concomitant]
     Active Substance: TAMSULOSIN HYDROCHLORIDE

REACTIONS (6)
  - Cardiac failure congestive [None]
  - Cataplexy [None]
  - Disorientation [None]
  - Feeling abnormal [None]
  - Heart rate irregular [None]
  - Aggression [None]

NARRATIVE: CASE EVENT DATE: 201406
